FAERS Safety Report 5025831-9 (Version None)
Quarter: 2006Q2

REPORT INFORMATION
  Report Type: 
  Country: None (occurrence: None)
  Receive Date: 20060608
  Receipt Date: 20060526
  Transmission Date: 20061013
  Serious: Yes (Hospitalization)
  Sender: FDA-Public Use
  Company Number: 222666

PATIENT
  Age: 71 Year
  Sex: Female
  Weight: 63.7 kg

DRUGS (16)
  1. AVASTIN [Suspect]
     Indication: COLORECTAL CANCER METASTATIC
     Dosage: 480 MG, Q3W, INTRAVENOUS
     Route: 042
     Dates: start: 20060110
  2. CAPECITABINE (CAPECITABINE) [Suspect]
     Indication: COLORECTAL CANCER METASTATIC
     Dosage: 1500 MG, BID, ORAL; SEE IMAGE
     Route: 048
     Dates: start: 20060110
  3. OXALIPLATIN (OXALIPLATIN) [Suspect]
     Indication: COLORECTAL CANCER METASTATIC
     Dosage: 208 MG, Q3W, INTRAVENOUS
     Route: 042
     Dates: start: 20060110
  4. HYDRALAZINE HCL [Concomitant]
  5. FOLIC ACID [Concomitant]
  6. VERAPAMIL [Concomitant]
  7. DIGOXIN [Concomitant]
  8. CATAPRESSAN (CLONIDINE HYDROCHLORIDE) [Concomitant]
  9. ACTONEL [Concomitant]
  10. PLAVIX [Concomitant]
  11. ASPIRIN [Concomitant]
  12. FLAXSEED (LINSEED) [Concomitant]
  13. CALCIUM/VITAMIN D (CALCIUM NOS, CHOLECALCIFEROL) [Concomitant]
  14. FLOVENT [Concomitant]
  15. LIPITOR [Concomitant]
  16. MULTIVITAMIN (MULTIVITAMINS NOS) [Concomitant]

REACTIONS (6)
  - ADHESION [None]
  - DEHYDRATION [None]
  - DIARRHOEA [None]
  - SMALL INTESTINAL OBSTRUCTION [None]
  - UPPER RESPIRATORY TRACT INFECTION [None]
  - VOMITING [None]
